FAERS Safety Report 15649947 (Version 1)
Quarter: 2018Q4

REPORT INFORMATION
  Report Type: Spontaneous
  Country: GB (occurrence: GB)
  Receive Date: 20181123
  Receipt Date: 20181123
  Transmission Date: 20190205
  Serious: Yes (Hospitalization)
  Sender: FDA-Public Use
  Company Number: GB-SCIEGEN PHARMACEUTICALS INC-2018SCILIT00755

PATIENT

DRUGS (1)
  1. FLUOXETINE CAPSULES, USP [Suspect]
     Active Substance: FLUOXETINE HYDROCHLORIDE
     Indication: PRODUCT USED FOR UNKNOWN INDICATION
     Dosage: 20 MG TABLETS, 60 IN NUMBER
     Route: 048

REACTIONS (5)
  - Generalised tonic-clonic seizure [Unknown]
  - Overdose [Unknown]
  - Serotonin syndrome [Recovering/Resolving]
  - Rhabdomyolysis [Unknown]
  - Suicide attempt [Unknown]
